FAERS Safety Report 19878102 (Version 1)
Quarter: 2021Q3

REPORT INFORMATION
  Report Type: Spontaneous
  Country: US (occurrence: US)
  Receive Date: 20210922
  Receipt Date: 20210922
  Transmission Date: 20211014
  Serious: No
  Sender: FDA-Public Use
  Company Number: None

PATIENT

DRUGS (2)
  1. CARBOPLATIN. [Suspect]
     Active Substance: CARBOPLATIN
  2. ELECTRONIC ORDER ENTRY SYSTEM MOSAIQ [Suspect]
     Active Substance: DEVICE

REACTIONS (2)
  - Product prescribing error [None]
  - Dose calculation error [None]
